FAERS Safety Report 21401902 (Version 1)
Quarter: 2022Q4

REPORT INFORMATION
  Report Type: Report from Study
  Country: MX (occurrence: MX)
  Receive Date: 20221003
  Receipt Date: 20221003
  Transmission Date: 20230113
  Serious: Yes (Death, Other)
  Sender: FDA-Public Use
  Company Number: MX-NOVARTISPH-NVSC2022MX222252

PATIENT
  Age: 89 Year
  Sex: Male

DRUGS (1)
  1. EXELON [Suspect]
     Active Substance: RIVASTIGMINE TARTRATE
     Indication: Oxygen therapy
     Dosage: UNK, QD (EXTENDED RELEASE)
     Route: 062
     Dates: start: 2020, end: 202207

REACTIONS (3)
  - Cardiac arrest [Fatal]
  - Weight decreased [Unknown]
  - Off label use [Recovered/Resolved]

NARRATIVE: CASE EVENT DATE: 20220712
